FAERS Safety Report 9617457 (Version 1)
Quarter: 2013Q4

REPORT INFORMATION
  Report Type: Spontaneous
  Country: US (occurrence: None)
  Receive Date: 20131009
  Receipt Date: 20131009
  Transmission Date: 20140711
  Serious: No
  Sender: FDA-Public Use
  Company Number: 2011US000215

PATIENT
  Age: 61 Year
  Sex: Female
  Weight: 60.5 kg

DRUGS (7)
  1. PONATINIB (AP24534)TABLET [Suspect]
     Indication: CHRONIC MYELOID LEUKAEMIA
     Route: 048
     Dates: start: 20110609, end: 20110613
  2. ASPIRIN (ACETYLSALICYLIC ACID) [Concomitant]
  3. OMEPRAZOLE (OMEPRAZOLE) [Concomitant]
  4. OXYCODONE (OXYCODONE HYDROCHLORIDE) [Concomitant]
  5. ALLPURINOL (ALLPURINOL) [Concomitant]
  6. MGSO4 (MAGNEISUM SULFATE) [Concomitant]
  7. MEDROL DOSE PACK(METHYLPREDNISOLONE) [Concomitant]

REACTIONS (8)
  - Tumour lysis syndrome [None]
  - Urinary tract infection [None]
  - Pleural effusion [None]
  - Malignant neoplasm progression [None]
  - Asthenia [None]
  - Dyspnoea [None]
  - Fatigue [None]
  - Urosepsis [None]
